FAERS Safety Report 11180311 (Version 1)
Quarter: 2015Q2

REPORT INFORMATION
  Report Type: Spontaneous
  Country: US (occurrence: None)
  Receive Date: 20150610
  Receipt Date: 20150610
  Transmission Date: 20150821
  Serious: Yes (Hospitalization)
  Sender: FDA-Public Use
  Company Number: None

PATIENT
  Age: 58 Year
  Sex: Female
  Weight: 51.8 kg

DRUGS (1)
  1. TAXOTERE [Suspect]
     Active Substance: DOCETAXEL
     Dates: end: 20150527

REACTIONS (8)
  - Hypercalcaemia [None]
  - Decreased appetite [None]
  - Metastasis [None]
  - Performance status decreased [None]
  - Neck pain [None]
  - Fatigue [None]
  - Asthenia [None]
  - Malignant neoplasm progression [None]

NARRATIVE: CASE EVENT DATE: 20150603
